FAERS Safety Report 8915670 (Version 1)
Quarter: 2012Q4

REPORT INFORMATION
  Report Type: 
  Country: US (occurrence: US)
  Receive Date: 20121119
  Receipt Date: 20121119
  Transmission Date: 20130627
  Serious: Yes (Hospitalization, Other)
  Sender: FDA-Public Use
  Company Number: US-ROXANE LABORATORIES, INC.-2012-RO-02383RO

PATIENT
  Age: 29 Year
  Sex: Female

DRUGS (1)
  1. CYCLOPHOSPHAMIDE TABLETS USP [Suspect]
     Indication: FACTITIOUS DISORDER

REACTIONS (2)
  - Pancytopenia [Recovered/Resolved]
  - Haematoma [Recovered/Resolved]
